FAERS Safety Report 13907061 (Version 1)
Quarter: 2017Q3

REPORT INFORMATION
  Report Type: Spontaneous
  Country: GB (occurrence: GB)
  Receive Date: 20170825
  Receipt Date: 20170825
  Transmission Date: 20171127
  Serious: Yes (Other)
  Sender: FDA-Public Use
  Company Number: PHFR2017GB006839

PATIENT
  Age: 27 Year
  Sex: Female
  Weight: 89 kg

DRUGS (1)
  1. PHENOXYMETHYLPENICILLIN [Suspect]
     Active Substance: PENICILLIN V
     Indication: OROPHARYNGEAL PAIN
     Dosage: 500 MG, UNK
     Route: 048
     Dates: start: 20170807, end: 20170807

REACTIONS (5)
  - Pruritus [Recovered/Resolved with Sequelae]
  - Vomiting projectile [Recovered/Resolved]
  - Wheezing [Recovered/Resolved]
  - Chest pain [Recovered/Resolved]
  - Chest discomfort [Recovered/Resolved]

NARRATIVE: CASE EVENT DATE: 20170807
